FAERS Safety Report 5258799-0 (Version None)
Quarter: 2007Q1

REPORT INFORMATION
  Report Type: 
  Country: None (occurrence: None)
  Receive Date: 20061117
  Receipt Date: 20060323
  Transmission Date: 20070707
  Serious: Yes (Other)
  Sender: FDA-Public Use
  Company Number: US-JNJFOC-20060200649

PATIENT
  Age: 49 Year
  Sex: Male
  Weight: 101.6057 kg

DRUGS (3)
  1. LEVAQUIN [Suspect]
     Indication: DIVERTICULITIS
     Dosage: , 1 IN 1 DAY, ORAL
     Route: 048
     Dates: start: 20060118, end: 20060130
  2. LEVAQUIN [Suspect]
     Indication: GASTROINTESTINAL INFECTION
     Dosage: , 1 IN 1 DAY, ORAL
     Route: 048
     Dates: start: 20060118, end: 20060130
  3. FLAGYL [Concomitant]

REACTIONS (1)
  - ANAPHYLACTIC SHOCK [None]
